FAERS Safety Report 6718113-8 (Version None)
Quarter: 2010Q2

REPORT INFORMATION
  Report Type: 
  Country: None (occurrence: None)
  Receive Date: 20100510
  Receipt Date: 20100503
  Transmission Date: 20101027
  Serious: Yes (Hospitalization)
  Sender: FDA-Public Use
  Company Number: A0857693A

PATIENT
  Age: 75 Year
  Sex: Male

DRUGS (5)
  1. AVODART [Suspect]
     Indication: POLLAKIURIA
     Dosage: .5MCG SINGLE DOSE
     Route: 048
     Dates: start: 20100215, end: 20100215
  2. PLAVIX [Concomitant]
  3. METOPROLOL [Concomitant]
  4. SIMVASTATIN [Concomitant]
  5. DILANTIN [Concomitant]

REACTIONS (4)
  - DYSURIA [None]
  - HYPERHIDROSIS [None]
  - PROSTATE CANCER [None]
  - VOMITING [None]
